FAERS Safety Report 9424200 (Version 1)
Quarter: 2013Q3

REPORT INFORMATION
  Report Type: Report from Study
  Country: SI (occurrence: SI)
  Receive Date: 20130729
  Receipt Date: 20130729
  Transmission Date: 20140515
  Serious: Yes (Death, Disabling)
  Sender: FDA-Public Use
  Company Number: SI-ROCHE-562681

PATIENT
  Age: 70 Year
  Sex: Male
  Weight: 64 kg

DRUGS (3)
  1. BEVACIZUMAB [Suspect]
     Indication: COLORECTAL CANCER METASTATIC
     Dosage: FREQUENCY REPORTED : ONCE, THERAPY WAS PERMENANTLY DISCONTINUED ON 05 MAY 2008.
     Route: 042
     Dates: start: 20080424, end: 20080505
  2. CAPECITABINE [Suspect]
     Indication: COLORECTAL CANCER METASTATIC
     Dosage: AS PER PROTOCOL, 1000MG/M2 BID ON 3 WEEKS SCHEDULE. THERAPY PERMENANTLY DISCONTINUED ON 05 MAY 2008.
     Route: 048
     Dates: start: 20080424, end: 20080505
  3. CONCOR [Concomitant]
     Route: 065
     Dates: start: 20080107, end: 20080429

REACTIONS (4)
  - Pulmonary embolism [Fatal]
  - Pulmonary embolism [Fatal]
  - Somnolence [Fatal]
  - Pneumonia [Fatal]
